FAERS Safety Report 9965844 (Version 1)
Quarter: 2014Q1

REPORT INFORMATION
  Report Type: Report from Study
  Country: US (occurrence: US)
  Receive Date: 20140305
  Receipt Date: 20140305
  Transmission Date: 20141002
  Serious: No
  Sender: FDA-Public Use
  Company Number: US-ABBVIE-13P-163-1124712-00

PATIENT
  Age: 46 Year
  Sex: Female

DRUGS (7)
  1. HUMIRA [Suspect]
     Indication: CROHN^S DISEASE
     Dates: start: 20130606, end: 20130606
  2. HUMIRA [Suspect]
     Dates: start: 20130620, end: 20130620
  3. HUMIRA [Suspect]
     Dates: start: 20130704
  4. PENTASA [Concomitant]
     Indication: CROHN^S DISEASE
     Dosage: 2000 MG DAILY
  5. ENTOCORT [Concomitant]
     Indication: CROHN^S DISEASE
     Dosage: 3 MG DAILY
  6. LISINOPRIL [Concomitant]
     Indication: HYPERTENSION
     Dosage: 10 MG DAILY
  7. BIRTH CONTROL PILL [Concomitant]
     Dosage: DAILY

REACTIONS (2)
  - Injection site bruising [Not Recovered/Not Resolved]
  - Alopecia [Not Recovered/Not Resolved]
